FAERS Safety Report 7644123-2 (Version None)
Quarter: 2011Q3

REPORT INFORMATION
  Report Type: 
  Country: None (occurrence: None)
  Receive Date: 20110728
  Receipt Date: 20110728
  Transmission Date: 20111222
  Serious: Yes (Life-Threatening, Hospitalization, Disabling)
  Sender: FDA-Public Use
  Company Number: None

PATIENT
  Sex: Male
  Weight: 72.7 kg

DRUGS (2)
  1. MAXALT-MLT [Suspect]
     Indication: CLUSTER HEADACHE
     Dosage: 10 MG AS NEEDED UNDER TONGUE
     Route: 048
     Dates: start: 19870101
  2. MAXALT-MLT [Suspect]
     Indication: MIGRAINE
     Dosage: 10 MG AS NEEDED UNDER TONGUE
     Route: 048
     Dates: start: 19870101

REACTIONS (4)
  - MESENTERIC ARTERY THROMBOSIS [None]
  - ILL-DEFINED DISORDER [None]
  - DIARRHOEA [None]
  - INJECTION SITE HAEMATOMA [None]
